FAERS Safety Report 5787494-4 (Version None)
Quarter: 2008Q2

REPORT INFORMATION
  Report Type: 
  Country: None (occurrence: None)
  Receive Date: 20080625
  Receipt Date: 20071102
  Transmission Date: 20081010
  Serious: No
  Sender: FDA-Public Use
  Company Number: US-ASTRAZENECA-2007UW25426

PATIENT
  Age: 58 Year
  Sex: Male
  Weight: 90.9 kg

DRUGS (1)
  1. PULMICORT-100 [Suspect]
     Dosage: 4 PUFFS QD
     Route: 055
     Dates: start: 20050101

REACTIONS (1)
  - NERVOUSNESS [None]
